FAERS Safety Report 8855311 (Version 1)
Quarter: 2012Q4

REPORT INFORMATION
  Report Type: 
  Country: US (occurrence: US)
  Receive Date: 20121023
  Receipt Date: 20121023
  Transmission Date: 20130627
  Serious: No
  Sender: FDA-Public Use
  Company Number: US-AMGEN-USASP2012059870

PATIENT
  Age: 60 Year
  Sex: Female
  Weight: 68.03 kg

DRUGS (14)
  1. ENBREL [Suspect]
     Indication: PRODUCT USED FOR UNKNOWN INDICATION
     Dosage: 50 mg, qwk
     Route: 058
  2. HYDROXYCHLOROQUINE [Concomitant]
     Dosage: 200 mg, UNK
  3. NABUMETONE [Concomitant]
     Dosage: 500 mg, UNK
  4. PREDNISONE [Concomitant]
     Dosage: 10 mg, UNK
  5. FOSAMAX [Concomitant]
     Dosage: 10 mg, UNK
  6. ASPIRIN [Concomitant]
     Dosage: 81 mg, LOW CHW 81MG UNK
  7. FISH OIL [Concomitant]
     Dosage: UNK
  8. FLAXSEED OIL [Concomitant]
     Dosage: UNK
  9. OMEGA 3                            /01334101/ [Concomitant]
     Dosage: 1000 mg, UNK
  10. OSTEO BI-FLEX [Concomitant]
     Dosage: 200-250 mg, UNK
  11. CALCIUM D                          /00944201/ [Concomitant]
     Dosage: UNK
  12. QUERCETIN [Concomitant]
     Dosage: UNK
  13. MULTIVIT                           /07504101/ [Concomitant]
     Dosage: UNK
  14. CINNAMON                           /01647501/ [Concomitant]
     Dosage: 500 mg, UNK

REACTIONS (1)
  - Nasopharyngitis [Unknown]
